FAERS Safety Report 20057635 (Version 7)
Quarter: 2022Q1

REPORT INFORMATION
  Report Type: Report from Study
  Country: US (occurrence: US)
  Receive Date: 20211111
  Receipt Date: 20220316
  Transmission Date: 20220423
  Serious: Yes (Hospitalization, Other)
  Sender: FDA-Public Use
  Company Number: US-TAKEDA-2021TUS067781

PATIENT
  Age: 1 Year
  Sex: Male

DRUGS (13)
  1. TEDUGLUTIDE [Suspect]
     Active Substance: TEDUGLUTIDE
     Indication: Short-bowel syndrome
     Dosage: 0.5 MILLIGRAM, QD
     Route: 048
  2. TEDUGLUTIDE [Suspect]
     Active Substance: TEDUGLUTIDE
     Indication: Short-bowel syndrome
     Dosage: 0.5 MILLIGRAM, QD
     Route: 048
  3. TEDUGLUTIDE [Suspect]
     Active Substance: TEDUGLUTIDE
     Indication: Short-bowel syndrome
     Dosage: 0.5 MILLIGRAM, QD
     Route: 048
  4. TEDUGLUTIDE [Suspect]
     Active Substance: TEDUGLUTIDE
     Indication: Short-bowel syndrome
     Dosage: 0.5 MILLIGRAM, QD
     Route: 048
  5. LOVENOX [Suspect]
     Active Substance: ENOXAPARIN SODIUM
     Indication: Prophylaxis
     Dosage: UNK
     Route: 065
  6. PROCTOFOAM HC [Concomitant]
     Active Substance: HYDROCORTISONE ACETATE\PRAMOXINE HYDROCHLORIDE
     Indication: Haematochezia
     Dosage: 0.5 DOSAGE FORM, BID
     Route: 054
     Dates: start: 20201113
  7. SULFASALAZINE [Concomitant]
     Active Substance: SULFASALAZINE
     Indication: Ulcer
     Dosage: 125 MILLIGRAM, TID
     Route: 050
     Dates: start: 20200529
  8. SODIUM CHLORIDE [Concomitant]
     Active Substance: SODIUM CHLORIDE
     Indication: Nasal congestion
     Dosage: 1 DOSAGE FORM, PRN
     Route: 055
     Dates: start: 20191203
  9. OMEPRAZOLE [Concomitant]
     Active Substance: OMEPRAZOLE
     Indication: Retching
     Dosage: 3.60 MILLILITER, QD
     Route: 050
     Dates: start: 20200513
  10. ERYTHROMYCIN [Concomitant]
     Active Substance: ERYTHROMYCIN
     Indication: Impaired gastric emptying
     Dosage: 34 MILLIGRAM, TID
     Route: 050
     Dates: start: 20210625
  11. ERYTHROMYCIN [Concomitant]
     Active Substance: ERYTHROMYCIN
     Indication: Gastrointestinal motility disorder
     Dosage: 68 UNK
     Route: 050
     Dates: start: 20210423, end: 20210625
  12. ERYTHROMYCIN [Concomitant]
     Active Substance: ERYTHROMYCIN
     Dosage: 52 MILLIGRAM, TID
     Route: 050
     Dates: start: 20210108, end: 20210423
  13. ERYTHROMYCIN [Concomitant]
     Active Substance: ERYTHROMYCIN
     Dosage: 40 MILLIGRAM, TID
     Route: 065
     Dates: start: 20200918, end: 20210108

REACTIONS (6)
  - Gastrointestinal haemorrhage [Recovered/Resolved]
  - Rectal haemorrhage [Recovered/Resolved]
  - Irritability [Recovered/Resolved]
  - Blood loss anaemia [Recovered/Resolved]
  - Gastritis [Recovered/Resolved]
  - Ulcer [Recovered/Resolved]

NARRATIVE: CASE EVENT DATE: 20201101
